FAERS Safety Report 13546941 (Version 1)
Quarter: 2017Q2

REPORT INFORMATION
  Report Type: Spontaneous
  Country: DK (occurrence: DK)
  Receive Date: 20170515
  Receipt Date: 20170515
  Transmission Date: 20170830
  Serious: Yes (Hospitalization)
  Sender: FDA-Public Use
  Company Number: DK-PFIZER INC-2017208959

PATIENT
  Age: 76 Year
  Sex: Female

DRUGS (10)
  1. BENZYLPENICILLIN PANPHARMA [Concomitant]
     Active Substance: PENICILLIN G
  2. BROMAM [Concomitant]
     Active Substance: BROMAZEPAM
  3. LYRICA [Suspect]
     Active Substance: PREGABALIN
     Indication: ANXIETY
     Dosage: 75 MG, 2X/DAY
     Route: 048
     Dates: start: 20170420
  4. ALENDRONATE [Concomitant]
     Active Substance: ALENDRONATE SODIUM
  5. PAMOL [Concomitant]
     Active Substance: ACETAMINOPHEN
  6. AKINETON [Concomitant]
     Active Substance: BIPERIDEN HYDROCHLORIDE
  7. TRILAFON DEKANOAT [Suspect]
     Active Substance: PERPHENAZINE DECANOATE
     Indication: NERVOUS SYSTEM DISORDER
     Dosage: UNK
     Route: 030
     Dates: start: 20150924
  8. AMLODIPIN /00972401/ [Concomitant]
     Active Substance: AMLODIPINE BESYLATE
  9. UNIKALK BASIC [Concomitant]
  10. VALSARTAN. [Concomitant]
     Active Substance: VALSARTAN

REACTIONS (2)
  - Fall [Not Recovered/Not Resolved]
  - White blood cell count increased [Unknown]

NARRATIVE: CASE EVENT DATE: 20170503
